FAERS Safety Report 8777968 (Version 1)
Quarter: 2012Q4

REPORT INFORMATION
  Report Type: 
  Country: US (occurrence: US)
  Receive Date: 20120912
  Receipt Date: 20120912
  Transmission Date: 20130627
  Serious: No
  Sender: FDA-Public Use
  Company Number: US-ASTRAZENECA-2012SE61241

PATIENT
  Age: 65 Year
  Sex: Female
  Weight: 81.6 kg

DRUGS (3)
  1. NEXIUM [Suspect]
     Indication: DYSPEPSIA
     Route: 048
     Dates: end: 201208
  2. NEXIUM [Suspect]
     Indication: DYSPEPSIA
     Route: 048
     Dates: end: 201208
  3. ATENOLOL [Concomitant]

REACTIONS (2)
  - Dyspepsia [Unknown]
  - Drug dose omission [Unknown]
